FAERS Safety Report 7459242-3 (Version None)
Quarter: 2011Q2

REPORT INFORMATION
  Report Type: 
  Country: None (occurrence: None)
  Receive Date: 20110505
  Receipt Date: 20110422
  Transmission Date: 20111010
  Serious: Yes (Hospitalization, Other)
  Sender: FDA-Public Use
  Company Number: US-RANBAXY-2011RR-41888

PATIENT
  Sex: Male

DRUGS (6)
  1. CIPROFLOXACIN [Suspect]
     Indication: RESPIRATORY TRACT INFECTION
  2. LEVAQUIN [Suspect]
     Indication: RESPIRATORY DISORDER
     Dosage: UNK
     Route: 048
     Dates: start: 19990101, end: 20090731
  3. ROCEPHIN [Concomitant]
     Indication: PNEUMONIA
     Route: 042
  4. CIPROFLOXACIN [Suspect]
     Indication: EAR INFECTION
     Route: 065
  5. CIPROFLOXACIN [Suspect]
     Indication: SINUSITIS
  6. LEVAQUIN [Suspect]
     Indication: PNEUMONIA
     Dosage: 500 MG, UNK
     Route: 042

REACTIONS (3)
  - EPICONDYLITIS [None]
  - ROTATOR CUFF SYNDROME [None]
  - TENDONITIS [None]
